FAERS Safety Report 13044877 (Version 1)
Quarter: 2016Q4

REPORT INFORMATION
  Report Type: Report from Study
  Country: US (occurrence: US)
  Receive Date: 20161220
  Receipt Date: 20161220
  Transmission Date: 20170207
  Serious: Yes (Other)
  Sender: FDA-Public Use
  Company Number: US-ROCHE-1868201

PATIENT
  Sex: Female
  Weight: 68.1 kg

DRUGS (10)
  1. AVASTIN [Suspect]
     Active Substance: BEVACIZUMAB
     Route: 065
     Dates: start: 20160413
  2. AVASTIN [Suspect]
     Active Substance: BEVACIZUMAB
     Route: 065
     Dates: start: 20160504
  3. GLEEVEC [Concomitant]
     Active Substance: IMATINIB MESYLATE
     Route: 048
  4. AVASTIN [Suspect]
     Active Substance: BEVACIZUMAB
     Indication: MENINGIOMA BENIGN
     Route: 065
     Dates: start: 20160119
  5. AVASTIN [Suspect]
     Active Substance: BEVACIZUMAB
     Route: 065
     Dates: start: 20160204
  6. AVASTIN [Suspect]
     Active Substance: BEVACIZUMAB
     Route: 065
     Dates: start: 20160302
  7. AVASTIN [Suspect]
     Active Substance: BEVACIZUMAB
     Route: 065
     Dates: start: 20160323
  8. DECADRON [Concomitant]
     Active Substance: DEXAMETHASONE
  9. AVASTIN [Suspect]
     Active Substance: BEVACIZUMAB
     Indication: BRAIN OEDEMA
     Dosage: ONGOING:NO
     Route: 065
     Dates: start: 201601, end: 201605
  10. AVASTIN [Suspect]
     Active Substance: BEVACIZUMAB
     Route: 065
     Dates: start: 20160217

REACTIONS (2)
  - Gastrointestinal stromal tumour [Unknown]
  - Off label use [Unknown]

NARRATIVE: CASE EVENT DATE: 2016
